FAERS Safety Report 9753192 (Version 7)
Quarter: 2014Q4

REPORT INFORMATION
  Report Type: Spontaneous
  Country: US (occurrence: US)
  Receive Date: 20131213
  Receipt Date: 20141020
  Transmission Date: 20150529
  Serious: Yes (Hospitalization, Congenital Anomaly, Other)
  Sender: FDA-Public Use
  Company Number: US-ELI_LILLY_AND_COMPANY-US201312003222

PATIENT
  Sex: Female

DRUGS (4)
  1. ORTHO CYCLEN [Concomitant]
     Active Substance: ETHINYL ESTRADIOL\NORGESTIMATE
  2. PROZAC [Suspect]
     Active Substance: FLUOXETINE HYDROCHLORIDE
     Indication: PRODUCT USED FOR UNKNOWN INDICATION
     Dosage: 1 DF, UNKNOWN
     Route: 064
  3. IRON [Concomitant]
     Active Substance: IRON
  4. GARDASIL [Concomitant]
     Active Substance: HUMAN PAPILLOMAVIRUS QUADRIVALENT (TYPES 6, 11, 16, AND 18) VACCINE, RECOMBINANT

REACTIONS (25)
  - Congenital inguinal hernia [Unknown]
  - Tachycardia [Unknown]
  - Encephalocele [Unknown]
  - Renal hypertrophy [Unknown]
  - Vomiting [Unknown]
  - Cellulitis staphylococcal [Recovered/Resolved]
  - Irritability [Unknown]
  - Aggression [Unknown]
  - Diarrhoea [Unknown]
  - Anxiety [Unknown]
  - Social avoidant behaviour [Unknown]
  - Ovulation pain [Unknown]
  - Fatigue [Unknown]
  - Endocardial fibroelastosis [Unknown]
  - Exomphalos [Unknown]
  - Renal dysplasia [Unknown]
  - Menstruation irregular [Unknown]
  - Renal aplasia [Unknown]
  - Foetal exposure during pregnancy [Recovered/Resolved]
  - Dysmenorrhoea [Unknown]
  - Menorrhagia [Unknown]
  - Mood altered [Unknown]
  - Congenital uterine anomaly [Unknown]
  - Pulmonary hypertension [Unknown]
  - Lethargy [Unknown]
